FAERS Safety Report 9630923 (Version 1)
Quarter: 2013Q4

REPORT INFORMATION
  Report Type: Spontaneous
  Country: NL (occurrence: NL)
  Receive Date: 20131018
  Receipt Date: 20131018
  Transmission Date: 20140711
  Serious: Yes (Life-Threatening, Hospitalization)
  Sender: FDA-Public Use
  Company Number: NL-PFIZER INC-2013297406

PATIENT
  Age: 59 Year
  Sex: Male

DRUGS (8)
  1. CISPLATINE TEVA [Suspect]
     Indication: SMALL CELL LUNG CANCER
     Dosage: UNK
     Route: 042
     Dates: start: 20130923
  2. PAMIDRONINEZUUR [Interacting]
     Dosage: AFTER CHEMO COURSE
     Route: 042
     Dates: start: 2013
  3. OXYNORM [Concomitant]
     Dosage: 1-6DD1 (5 MG,1 IN 1D)
     Route: 048
  4. HYDROCHLOROTHIAZIDE [Concomitant]
     Dosage: 1DD0.5 (12.5 MG,1 IN 1D)
     Route: 048
  5. MOVICOLON [Concomitant]
     Dosage: 2DD1 (1 DOSAGE FORMS,2 IN 1 D)
     Route: 048
  6. OMEPRAZOL [Concomitant]
     Dosage: 1DD1 (40 MG,1 IN 1 D)
     Route: 048
  7. PARACETAMOL [Concomitant]
     Dosage: 4DD2 (1000 MG,4 IN 1 D)
     Route: 048
  8. OXYCONTIN [Concomitant]
     Dosage: 2DD1 (10 MG,2 IN 1 D)
     Route: 048

REACTIONS (2)
  - Hypocalcaemia [Recovering/Resolving]
  - Drug interaction [Unknown]
